FAERS Safety Report 10537739 (Version 1)
Quarter: 2014Q4

REPORT INFORMATION
  Report Type: Spontaneous
  Country: DK (occurrence: DK)
  Receive Date: 20141023
  Receipt Date: 20141023
  Transmission Date: 20150529
  Serious: Yes (Hospitalization)
  Sender: FDA-Public Use
  Company Number: DK-BRACCO-000133

PATIENT
  Age: 68 Year
  Sex: Male

DRUGS (9)
  1. MABTHERA [Suspect]
     Active Substance: RITUXIMAB
     Indication: CHRONIC LYMPHOCYTIC LEUKAEMIA
     Dates: start: 20100819
  2. E-Z-CAT DRY [Suspect]
     Active Substance: BARIUM SULFATE
     Indication: SCAN WITH CONTRAST
     Route: 048
     Dates: start: 20111115
  3. SENDOXAN [Suspect]
     Active Substance: CYCLOPHOSPHAMIDE
     Indication: CHRONIC LYMPHOCYTIC LEUKAEMIA
     Dates: start: 20100819
  4. E-Z-CAT DRY [Suspect]
     Active Substance: BARIUM SULFATE
     Indication: SCAN WITH CONTRAST
     Route: 048
     Dates: start: 20110826
  5. E-Z-CAT DRY [Suspect]
     Active Substance: BARIUM SULFATE
     Indication: SCAN WITH CONTRAST
     Route: 048
     Dates: start: 20120626
  6. LEVACT [Suspect]
     Active Substance: BENDAMUSTINE HYDROCHLORIDE
     Indication: CHRONIC LYMPHOCYTIC LEUKAEMIA
  7. E-Z-CAT DRY [Suspect]
     Active Substance: BARIUM SULFATE
     Indication: SCAN WITH CONTRAST
     Route: 048
     Dates: start: 20120208
  8. CIFIN [Suspect]
     Active Substance: CIPROFLOXACIN HYDROCHLORIDE
     Indication: PNEUMONIA
     Route: 048
     Dates: start: 201207
  9. FLUDARA [Suspect]
     Active Substance: FLUDARABINE PHOSPHATE
     Indication: CHRONIC LYMPHOCYTIC LEUKAEMIA
     Route: 048
     Dates: start: 2010

REACTIONS (1)
  - Renal impairment [Recovered/Resolved]

NARRATIVE: CASE EVENT DATE: 201208
